FAERS Safety Report 9681184 (Version 2)
Quarter: 2013Q4

REPORT INFORMATION
  Report Type: Report from Study
  Country: US (occurrence: US)
  Receive Date: 20131111
  Receipt Date: 20131111
  Transmission Date: 20140711
  Serious: Yes (Hospitalization, Other)
  Sender: FDA-Public Use
  Company Number: US-ABBVIE-12P-163-0929561-00

PATIENT
  Age: 42 Year
  Sex: Female

DRUGS (4)
  1. HUMIRA 40 MG/0.8 ML PEN [Suspect]
     Indication: RHEUMATOID ARTHRITIS
     Dates: start: 200212, end: 200308
  2. HUMIRA 40 MG/0.8 ML PEN [Suspect]
     Dates: start: 20120414
  3. PREDNISONE [Suspect]
     Indication: PRODUCT USED FOR UNKNOWN INDICATION
     Dosage: TAPERING DOSE
  4. PAIN MEDICATION [Concomitant]
     Indication: PAIN

REACTIONS (8)
  - Lipoma [Not Recovered/Not Resolved]
  - Pneumonia [Unknown]
  - Diabetes mellitus [Recovering/Resolving]
  - Infection [Unknown]
  - Pneumonia [Unknown]
  - Fungal infection [Unknown]
  - Drug ineffective [Unknown]
  - Pain [Unknown]
